FAERS Safety Report 17868338 (Version 1)
Quarter: 2020Q3

REPORT INFORMATION
  Report Type: Spontaneous
  Country: CN (occurrence: CN)
  Receive Date: 20200606
  Receipt Date: 20200606
  Transmission Date: 20201104
  Serious: Yes (Other)
  Sender: FDA-Public Use
  Company Number: CN-ROCHE-2611603

PATIENT
  Age: 8 Year
  Sex: Female
  Weight: 34 kg

DRUGS (11)
  1. ETOPOSIDE. [Suspect]
     Active Substance: ETOPOSIDE
     Indication: ANAPLASTIC LARGE-CELL LYMPHOMA
     Route: 065
  2. ALECTINIB. [Suspect]
     Active Substance: ALECTINIB
     Indication: ANAPLASTIC LARGE-CELL LYMPHOMA
     Dosage: (DIVIDED INTO TWO DOSES).
     Route: 048
  3. CYCLOPHOSPHAMIDE. [Suspect]
     Active Substance: CYCLOPHOSPHAMIDE
     Indication: ANAPLASTIC LARGE-CELL LYMPHOMA
     Route: 065
  4. DOXORUBICIN [Suspect]
     Active Substance: DOXORUBICIN
     Indication: ANAPLASTIC LARGE-CELL LYMPHOMA
     Route: 065
  5. VINCRISTINE [Suspect]
     Active Substance: VINCRISTINE
     Indication: ANAPLASTIC LARGE-CELL LYMPHOMA
     Route: 065
  6. VINBLASTINE [Suspect]
     Active Substance: VINBLASTINE
     Indication: ANAPLASTIC LARGE-CELL LYMPHOMA
     Dosage: 6 MG/M2 (MAXIMUM, 10 MG) PER INJECTION
     Route: 065
  7. VINBLASTINE [Suspect]
     Active Substance: VINBLASTINE
     Route: 065
  8. PREDNISONE. [Suspect]
     Active Substance: PREDNISONE
     Indication: ANAPLASTIC LARGE-CELL LYMPHOMA
     Route: 065
  9. ALECTINIB. [Suspect]
     Active Substance: ALECTINIB
     Dosage: TOTAL DAILY DOSE OF ALECTINIB WAS REDUCED TO 450?600 MG
     Route: 065
  10. METHOTREXATE. [Suspect]
     Active Substance: METHOTREXATE
     Indication: ANAPLASTIC LARGE-CELL LYMPHOMA
     Dosage: 8 G/M2
     Route: 065
  11. CYTARABINE. [Suspect]
     Active Substance: CYTARABINE
     Indication: ANAPLASTIC LARGE-CELL LYMPHOMA
     Route: 065

REACTIONS (2)
  - Neutropenia [Unknown]
  - Escherichia sepsis [Unknown]
